FAERS Safety Report 17032474 (Version 1)
Quarter: 2019Q4

REPORT INFORMATION
  Report Type: Spontaneous
  Country: US (occurrence: US)
  Receive Date: 20191014
  Receipt Date: 20191014
  Transmission Date: 20200122
  Serious: No
  Sender: FDA-Public Use
  Company Number: None

PATIENT
  Age: 55 Year
  Sex: Female

DRUGS (1)
  1. ENBREL [Suspect]
     Active Substance: ETANERCEPT
     Dosage: ?          OTHER FREQUENCY:OTHER;?
     Route: 058
     Dates: start: 201602, end: 201902

REACTIONS (4)
  - Gastrointestinal disorder [None]
  - Abdominal distension [None]
  - Therapeutic product effect decreased [None]
  - Weight increased [None]

NARRATIVE: CASE EVENT DATE: 20191014
